FAERS Safety Report 4568122-2 (Version None)
Quarter: 2005Q1

REPORT INFORMATION
  Report Type: 
  Country: None (occurrence: None)
  Receive Date: 20050202
  Receipt Date: 20041007
  Transmission Date: 20050727
  Serious: Yes (Other)
  Sender: FDA-Public Use
  Company Number: US-ROCHE-382882

PATIENT
  Age: 36 Year
  Sex: Female

DRUGS (6)
  1. PEGASYS [Suspect]
     Indication: HEPATITIS C
     Dosage: ROUTE: INJ
     Route: 050
     Dates: start: 20040730
  2. PEGASYS [Suspect]
     Route: 050
     Dates: start: 20041108
  3. PEGASYS [Suspect]
     Route: 050
  4. PEGASYS [Suspect]
     Route: 050
     Dates: end: 20050114
  5. COPEGUS [Suspect]
     Indication: HEPATITIS C
     Route: 048
     Dates: start: 20040730
  6. COPEGUS [Suspect]
     Route: 048
     Dates: start: 20041108, end: 20050114

REACTIONS (22)
  - ADHESION [None]
  - BACK PAIN [None]
  - CHILLS [None]
  - CONTUSION [None]
  - DIZZINESS [None]
  - FATIGUE [None]
  - FULL BLOOD COUNT ABNORMAL [None]
  - FULL BLOOD COUNT DECREASED [None]
  - GRAND MAL CONVULSION [None]
  - HAEMORRHAGE [None]
  - HEADACHE [None]
  - INTRACRANIAL ANEURYSM [None]
  - MUSCLE STRAIN [None]
  - NERVOUSNESS [None]
  - OVARIAN CYST [None]
  - PAIN [None]
  - PLATELET COUNT DECREASED [None]
  - POST PROCEDURAL HAEMORRHAGE [None]
  - RASH [None]
  - TREMOR [None]
  - WEIGHT INCREASED [None]
  - WHITE BLOOD CELL COUNT DECREASED [None]
